FAERS Safety Report 7799302-0 (Version None)
Quarter: 2011Q4

REPORT INFORMATION
  Report Type: 
  Country: None (occurrence: None)
  Receive Date: 20111006
  Receipt Date: 20110927
  Transmission Date: 20120403
  Serious: Yes (Other)
  Sender: FDA-Public Use
  Company Number: US-JNJFOC-20111000171

PATIENT
  Age: 68 Year
  Sex: Female
  Weight: 62.6 kg

DRUGS (16)
  1. VITAMIN D [Concomitant]
     Indication: NUTRITIONAL SUPPORT
     Route: 065
  2. SLOW-MAG [Concomitant]
     Indication: PRODUCT USED FOR UNKNOWN INDICATION
     Route: 065
  3. IMODIUM MULTI-SYMPTOM RELIEF [Suspect]
     Route: 048
  4. PROGRAF [Concomitant]
     Indication: KIDNEY TRANSPLANT REJECTION
     Route: 065
     Dates: start: 20081001
  5. IMODIUM MULTI-SYMPTOM RELIEF [Suspect]
     Indication: DIARRHOEA
     Dosage: THRICE A DAY, AS DIRECTED ON THE LABEL
     Route: 048
     Dates: start: 20110926
  6. AUGMENTIN '125' [Concomitant]
     Indication: SINUS DISORDER
     Route: 065
  7. ZOLOFT [Concomitant]
     Indication: ANXIETY
     Route: 065
  8. DEMADEX [Concomitant]
     Indication: FLUID RETENTION
     Dosage: 6-7 YEARS
     Route: 065
  9. HYDROCHLOROTHIAZIDE [Concomitant]
     Indication: FLUID RETENTION
     Route: 065
  10. IMURAN [Concomitant]
     Indication: KIDNEY TRANSPLANT REJECTION
     Route: 065
     Dates: start: 20081001
  11. ROCALTROL [Concomitant]
     Indication: PRODUCT USED FOR UNKNOWN INDICATION
     Route: 065
     Dates: start: 20090101
  12. LOVAZA [Concomitant]
     Indication: BLOOD CHOLESTEROL
     Route: 065
     Dates: start: 20080101
  13. PRILOSEC [Concomitant]
     Indication: GASTROOESOPHAGEAL REFLUX DISEASE
     Route: 065
     Dates: start: 20070101
  14. VERAPAMIL [Concomitant]
     Indication: HYPERTENSION
     Dosage: SINCE YEARS
     Route: 065
  15. ASPIRIN [Concomitant]
     Indication: PRODUCT USED FOR UNKNOWN INDICATION
     Route: 065
  16. VITAMIN B-12 [Concomitant]
     Indication: NUTRITIONAL SUPPORT
     Dosage: 1 EVERY OTHER DAY, FOR 1 1/2 YEARS
     Route: 065

REACTIONS (2)
  - DRUG INEFFECTIVE [None]
  - DIARRHOEA [None]
